FAERS Safety Report 21140866 (Version 1)
Quarter: 2022Q3

REPORT INFORMATION
  Report Type: Spontaneous
  Country: US (occurrence: None)
  Receive Date: 20220728
  Receipt Date: 20220728
  Transmission Date: 20221026
  Serious: No
  Sender: FDA-Public Use
  Company Number: US-Ultragenyx Pharmaceutical Inc.-US-UGNX-22-00249

PATIENT
  Age: 29 Year
  Sex: Female

DRUGS (4)
  1. DOJOLVI [Suspect]
     Active Substance: TRIHEPTANOIN
     Indication: Fatty acid oxidation disorder
     Dates: start: 202201
  2. DOJOLVI [Suspect]
     Active Substance: TRIHEPTANOIN
     Dosage: 8ML VIA G-TUBE, ONCE DAILY AT NIGHT
  3. DOJOLVI [Suspect]
     Active Substance: TRIHEPTANOIN
     Dosage: 6.2ML VIA G-TUBE, ONCE DAILY AT NIGHT
  4. DOJOLVI [Suspect]
     Active Substance: TRIHEPTANOIN
     Route: 048

REACTIONS (4)
  - Adnexa uteri pain [Unknown]
  - Dyspepsia [Recovered/Resolved]
  - Vomiting [Unknown]
  - Abdominal pain [Recovered/Resolved]

NARRATIVE: CASE EVENT DATE: 20220424
